FAERS Safety Report 17114140 (Version 1)
Quarter: 2019Q4

REPORT INFORMATION
  Report Type: Report from Study
  Country: US (occurrence: US)
  Receive Date: 20191205
  Receipt Date: 20191205
  Transmission Date: 20200122
  Serious: Yes (Other)
  Sender: FDA-Public Use
  Company Number: US-ROCHE-2479321

PATIENT

DRUGS (6)
  1. DEXAMETHASONE. [Concomitant]
     Active Substance: DEXAMETHASONE
     Route: 065
  2. PACLITAXEL. [Suspect]
     Active Substance: PACLITAXEL
     Indication: NON-SMALL CELL LUNG CANCER
     Dosage: OVER 3 HOURS, ON DAY 1 OF EACH CYCLE
     Route: 042
  3. BEVACIZUMAB. [Suspect]
     Active Substance: BEVACIZUMAB
     Indication: NON-SMALL CELL LUNG CANCER
     Dosage: OVER 30-90 MINUTES, ON DAY 1 OF EACH CYCLE
     Route: 042
  4. DIPHENHYDRAMINE. [Concomitant]
     Active Substance: DIPHENHYDRAMINE
     Dosage: LESS THAN 0NE HOUR PRIOR TO PACLITAXEL INFUSION
     Route: 042
  5. CARBOPLATIN. [Suspect]
     Active Substance: CARBOPLATIN
     Indication: NON-SMALL CELL LUNG CANCER
     Dosage: AUC=6 MG/ML, OVER 15-30 MINUTES, ON DAY 1 OF EACH CYCLE
     Route: 042
  6. PEMETREXED. [Suspect]
     Active Substance: PEMETREXED
     Indication: NON-SMALL CELL LUNG CANCER
     Dosage: OVER 10 MINUTES ON DAY 1 OF EACH CYCLE
     Route: 042

REACTIONS (38)
  - Nausea [Unknown]
  - Vomiting [Unknown]
  - Anaphylactic reaction [Unknown]
  - Mucosal infection [Unknown]
  - Duodenal perforation [Unknown]
  - Small intestinal obstruction [Unknown]
  - Upper gastrointestinal haemorrhage [Unknown]
  - Oesophageal perforation [Unknown]
  - Oesophageal infection [Unknown]
  - Abdominal distension [Unknown]
  - Diarrhoea [Unknown]
  - Gastrointestinal pain [Unknown]
  - Small intestinal perforation [Unknown]
  - Hypersensitivity [Unknown]
  - Device related infection [Unknown]
  - Enterocolitis infectious [Unknown]
  - Pelvic infection [Unknown]
  - Upper respiratory tract infection [Unknown]
  - Hip fracture [Unknown]
  - Colitis [Unknown]
  - Anal fistula [Unknown]
  - Anorectal infection [Unknown]
  - Large intestinal haemorrhage [Unknown]
  - Constipation [Unknown]
  - Dysphagia [Unknown]
  - Oesophageal fistula [Unknown]
  - Oesophagitis [Unknown]
  - Gastritis [Unknown]
  - Lower gastrointestinal haemorrhage [Unknown]
  - Fall [Unknown]
  - Abdominal pain [Unknown]
  - Duodenal ulcer [Unknown]
  - Stomatitis [Unknown]
  - Abdominal infection [Unknown]
  - Skin infection [Unknown]
  - Rash maculo-papular [Unknown]
  - Enteritis infectious [Unknown]
  - Urinary tract infection [Unknown]
